FAERS Safety Report 8309371-7 (Version None)
Quarter: 2012Q2

REPORT INFORMATION
  Report Type: 
  Country: None (occurrence: None)
  Receive Date: 20120420
  Receipt Date: 20120412
  Transmission Date: 20120825
  Serious: Yes (Death, Other)
  Sender: FDA-Public Use
  Company Number: 2012SP010401

PATIENT
  Age: 60 Year
  Sex: Female
  Weight: 105 kg

DRUGS (7)
  1. PERPHENAZINE [Suspect]
     Indication: SCHIZOPHRENIA, PARANOID TYPE
     Dosage: 8 MG;TID;PO, 8 MG;BID;PO, 8 MG;QD;PO
     Route: 048
     Dates: start: 20120206
  2. PERPHENAZINE [Suspect]
     Indication: SCHIZOPHRENIA, PARANOID TYPE
     Dosage: 8 MG;TID;PO, 8 MG;BID;PO, 8 MG;QD;PO
     Route: 048
     Dates: end: 20120217
  3. PERPHENAZINE [Suspect]
     Indication: SCHIZOPHRENIA, PARANOID TYPE
     Dosage: 8 MG;TID;PO, 8 MG;BID;PO, 8 MG;QD;PO
     Route: 048
     Dates: end: 20120205
  4. AMLODIPINE [Concomitant]
  5. SYCREST (ASENAPINE /05706901/) [Suspect]
     Indication: MANIA
     Dosage: 10 MG;BID;SL, 10 MG;TID;SL
     Route: 060
     Dates: start: 20120214, end: 20120217
  6. SYCREST (ASENAPINE /05706901/) [Suspect]
     Indication: MANIA
     Dosage: 10 MG;BID;SL, 10 MG;TID;SL
     Route: 060
     Dates: start: 20120206, end: 20120213
  7. NEBIVOLOL HCL [Concomitant]

REACTIONS (5)
  - CARDIO-RESPIRATORY ARREST [None]
  - SYNCOPE [None]
  - CEREBRAL ATROPHY [None]
  - OVERDOSE [None]
  - BLOOD PRESSURE INCREASED [None]
